FAERS Safety Report 7450440-1 (Version None)
Quarter: 2011Q2

REPORT INFORMATION
  Report Type: 
  Country: None (occurrence: None)
  Receive Date: 20110422
  Receipt Date: 20110407
  Transmission Date: 20111010
  Serious: Yes (Hospitalization)
  Sender: FDA-Public Use
  Company Number: 2010001766

PATIENT
  Age: 64 Year
  Sex: Male

DRUGS (16)
  1. TEMAZEPAM [Concomitant]
  2. AVAPRO [Concomitant]
  3. NIZATIDINE [Concomitant]
  4. HYDROZOLE CREAM [Concomitant]
  5. BARACLUDE [Concomitant]
  6. PANADEINE FORTE (PANADEINE CO) [Concomitant]
  7. LASIX [Concomitant]
  8. SPIRONOLACTONE [Concomitant]
  9. FLOMAX [Concomitant]
  10. AMOXYCILLIN [Concomitant]
  11. ZOCOR [Concomitant]
  12. ERLOTINIB/PLACEBO (ERLOTINIB) (TABLET) (ERLOTINIB) [Suspect]
     Indication: HEPATIC NEOPLASM MALIGNANT
     Dosage: (150 MG, QD), ORAL
     Route: 048
     Dates: start: 20091223, end: 20100218
  13. FLAGYL [Concomitant]
  14. NEXIUM [Concomitant]
  15. SORAFENIB (TABLET) [Suspect]
     Indication: HEPATIC NEOPLASM MALIGNANT
     Dosage: (400 MG, BID) , ORAL
     Route: 048
     Dates: start: 20091223, end: 20100214
  16. CLOTRIMAZOLE/HYDROCORTISONE [Concomitant]

REACTIONS (2)
  - OESOPHAGEAL VARICES HAEMORRHAGE [None]
  - ULCER HAEMORRHAGE [None]
